FAERS Safety Report 10067003 (Version 1)
Quarter: 2014Q2

REPORT INFORMATION
  Report Type: Spontaneous
  Country: US (occurrence: US)
  Receive Date: 20140409
  Receipt Date: 20140409
  Transmission Date: 20141212
  Serious: Yes (Hospitalization)
  Sender: FDA-Public Use
  Company Number: US-BEH-2014041516

PATIENT
  Age: 29 Year
  Sex: Female

DRUGS (1)
  1. HUMATE-P [Suspect]

REACTIONS (2)
  - Premature labour [Recovered/Resolved]
  - Exposure during pregnancy [Unknown]
